FAERS Safety Report 22285924 (Version 1)
Quarter: 2023Q2

REPORT INFORMATION
  Report Type: Spontaneous
  Country: US (occurrence: US)
  Receive Date: 20230505
  Receipt Date: 20230505
  Transmission Date: 20230722
  Serious: No
  Sender: FDA-Public Use
  Company Number: US-drreddys-LIT/USA/23/0162780

PATIENT
  Age: 47 Year
  Sex: Female

DRUGS (2)
  1. SUMATRIPTAN SUCCINATE [Suspect]
     Active Substance: SUMATRIPTAN SUCCINATE
     Indication: Torticollis
  2. TIZANIDINE HYDROCHLORIDE [Suspect]
     Active Substance: TIZANIDINE HYDROCHLORIDE
     Indication: Torticollis

REACTIONS (5)
  - Stress cardiomyopathy [Recovered/Resolved]
  - Sinus bradycardia [Recovered/Resolved]
  - Hypotension [Unknown]
  - Product use in unapproved indication [Unknown]
  - Accidental overdose [Unknown]
